FAERS Safety Report 10084900 (Version 2)
Quarter: 2014Q2

REPORT INFORMATION
  Report Type: Spontaneous
  Country: NO (occurrence: NO)
  Receive Date: 20140417
  Receipt Date: 20140417
  Transmission Date: 20141212
  Serious: Yes (Hospitalization, Other)
  Sender: FDA-Public Use
  Company Number: NO-BAXTER-2014BAX013524

PATIENT
  Age: 50 Year
  Sex: Male

DRUGS (11)
  1. ENDOXAN [Suspect]
     Indication: GLOMERULONEPHRITIS
     Route: 048
  2. ENDOXAN [Suspect]
     Indication: ANTI-GLOMERULAR BASEMENT MEMBRANE ANTIBODY POSITIVE
     Route: 048
  3. METRONIDAZOL BAXTER VIAFLO 5 MG/ML INFUSJONSV?SKE, OPPL?SNING [Suspect]
     Indication: CLOSTRIDIUM COLITIS
     Route: 065
  4. METHYLPREDNISOLONE [Suspect]
     Indication: GLOMERULONEPHRITIS
     Route: 042
  5. METHYLPREDNISOLONE [Suspect]
     Indication: ANTI-GLOMERULAR BASEMENT MEMBRANE ANTIBODY POSITIVE
  6. PREDNISONE [Suspect]
     Indication: GLOMERULONEPHRITIS
     Route: 048
  7. PREDNISONE [Suspect]
     Indication: ANTI-GLOMERULAR BASEMENT MEMBRANE ANTIBODY POSITIVE
     Route: 065
  8. TRIMETHOPRIM SULFAMETHOXAZOLE [Suspect]
     Indication: ANTIFUNGAL PROPHYLAXIS
     Dosage: 1 TABLET
  9. CEFOTAXIME [Suspect]
     Indication: SEPSIS
     Route: 065
  10. ERYTHROMYCIN [Suspect]
     Indication: RESPIRATORY TRACT INFECTION
     Route: 065
  11. AZATHIOPRINE [Suspect]
     Indication: PRODUCT USED FOR UNKNOWN INDICATION
     Route: 065

REACTIONS (6)
  - Bone marrow failure [Recovered/Resolved]
  - Cytomegalovirus infection [Recovered/Resolved]
  - Diarrhoea [Recovered/Resolved]
  - Leukopenia [Recovered/Resolved]
  - Neutropenia [Recovered/Resolved]
  - Thrombosis [Recovered/Resolved]
